FAERS Safety Report 4507314-5 (Version None)
Quarter: 2004Q4

REPORT INFORMATION
  Report Type: 
  Country: None (occurrence: None)
  Receive Date: 20041025
  Receipt Date: 20040726
  Transmission Date: 20050328
  Serious: Yes (Hospitalization)
  Sender: FDA-Public Use
  Company Number: US-JNJFOC-20040707026

PATIENT
  Age: 62 Year
  Sex: Female

DRUGS (12)
  1. INFLIXIMAB (INFLIXIMAB, RECOMBINANT) LYOPHILIZED POWDER [Suspect]
     Indication: RHEUMATOID ARTHRITIS
     Dosage: INTRAVENOUS
     Route: 042
     Dates: start: 20010314, end: 20010401
  2. ENTREL (ETANERCEPT) [Concomitant]
  3. CIMETIDINE [Concomitant]
  4. DARVOCET-N 100 [Concomitant]
  5. FOLIC ACID [Concomitant]
  6. FOSAMAX [Concomitant]
  7. MAALOX (MAALOX) [Concomitant]
  8. PLENDIL [Concomitant]
  9. PREDNISONE [Concomitant]
  10. THYROID TAB [Concomitant]
  11. METHOTREXATE [Concomitant]
  12. CALCIUM + D (CALCIUM) [Concomitant]

REACTIONS (1)
  - MENINGITIS [None]
